FAERS Safety Report 17524376 (Version 1)
Quarter: 2020Q1

REPORT INFORMATION
  Report Type: Spontaneous
  Country: US (occurrence: US)
  Receive Date: 20200310
  Receipt Date: 20200310
  Transmission Date: 20200409
  Serious: Yes (Hospitalization)
  Sender: FDA-Public Use
  Company Number: None

PATIENT
  Age: 64 Year
  Sex: Female
  Weight: 109.35 kg

DRUGS (8)
  1. INSULIN GLARGINE [Concomitant]
     Active Substance: INSULIN GLARGINE
     Dates: start: 20140422
  2. CETIRIZINE [Concomitant]
     Active Substance: CETIRIZINE HYDROCHLORIDE
     Dates: start: 20110608
  3. TRAZODONE [Concomitant]
     Active Substance: TRAZODONE HYDROCHLORIDE
     Dates: start: 20130325
  4. ATORVASTATIN [Concomitant]
     Active Substance: ATORVASTATIN
     Dates: start: 20130405
  5. CHOLECALCIFEROL [Concomitant]
     Active Substance: CHOLECALCIFEROL
     Dates: start: 20130107
  6. SEMAGLUTIDE [Suspect]
     Active Substance: SEMAGLUTIDE
     Indication: TYPE 2 DIABETES MELLITUS
     Dosage: ?          OTHER FREQUENCY:QWEEKLY;?
     Route: 058
     Dates: start: 20190213
  7. METFORMIN SA [Concomitant]
     Dates: start: 20100301
  8. HCTZ/LISINOPRIL [Concomitant]
     Active Substance: HYDROCHLOROTHIAZIDE\LISINOPRIL
     Dates: start: 20100301

REACTIONS (2)
  - Cholecystitis acute [None]
  - Cholecystectomy [None]

NARRATIVE: CASE EVENT DATE: 20200123
